FAERS Safety Report 9642934 (Version 2)
Quarter: 2013Q4

REPORT INFORMATION
  Report Type: Report from Study
  Country: DE (occurrence: DE)
  Receive Date: 20131024
  Receipt Date: 20131126
  Transmission Date: 20140711
  Serious: Yes (Hospitalization, Other)
  Sender: FDA-Public Use
  Company Number: DE-UCBSA-100885

PATIENT
  Sex: Male
  Weight: 92 kg

DRUGS (10)
  1. CERTOLIZUMAB PEGOL [Suspect]
     Indication: RHEUMATOID ARTHRITIS
     Route: 058
     Dates: start: 20100604, end: 201307
  2. TILIDINE [Concomitant]
  3. OMEPRAZOLE [Concomitant]
  4. METOPROLOL SUCCINATE [Concomitant]
     Dosage: DOSE: 95-0-0
  5. ALLOPURINOL [Concomitant]
     Dosage: DOSE: 0-300-0
  6. SPIRONOLACTONE [Concomitant]
     Dosage: DOSE: 50 MG, 0.5-0-0
  7. TORASEMIDE [Concomitant]
     Dosage: DOSE: 10 MG 10-10-0
  8. ?-ACETYLDIGOXIN [Concomitant]
     Dosage: DOSE: 0.2 MG 0.2-0-0
  9. CLEXANE [Concomitant]
     Dosage: DOSE: 80 1-0-1
  10. MARCUMAR [Concomitant]

REACTIONS (2)
  - Appendicitis [Recovering/Resolving]
  - Peritonitis [Recovering/Resolving]
